FAERS Safety Report 20142823 (Version 1)
Quarter: 2021Q4

REPORT INFORMATION
  Report Type: Report from Study
  Country: CA (occurrence: CA)
  Receive Date: 20211202
  Receipt Date: 20211202
  Transmission Date: 20220303
  Serious: Yes (Other)
  Sender: FDA-Public Use
  Company Number: CA-JNJFOC-20211162421

PATIENT
  Age: 38 Year
  Sex: Female
  Weight: 57.2 kg

DRUGS (1)
  1. REMICADE [Suspect]
     Active Substance: INFLIXIMAB
     Indication: Colitis ulcerative
     Route: 042
     Dates: start: 20181107

REACTIONS (1)
  - Mammoplasty [Unknown]

NARRATIVE: CASE EVENT DATE: 20211020
